FAERS Safety Report 10930326 (Version 1)
Quarter: 2015Q1

REPORT INFORMATION
  Report Type: Spontaneous
  Country: US (occurrence: US)
  Receive Date: 20150319
  Receipt Date: 20150319
  Transmission Date: 20150721
  Serious: Yes (Other)
  Sender: FDA-Public Use
  Company Number: US-PFIZER INC-2015095464

PATIENT
  Sex: Male

DRUGS (1)
  1. VIAGRA [Suspect]
     Active Substance: SILDENAFIL CITRATE
     Indication: ERECTILE DYSFUNCTION
     Dosage: 50 MG, AS NEEDED
     Route: 048
     Dates: start: 20150312

REACTIONS (6)
  - Erection increased [Unknown]
  - Chloropsia [Not Recovered/Not Resolved]
  - Ejaculation disorder [Unknown]
  - Cyanopsia [Not Recovered/Not Resolved]
  - Semen discolouration [Unknown]
  - Semen volume abnormal [Unknown]

NARRATIVE: CASE EVENT DATE: 20150312
